FAERS Safety Report 23228085 (Version 2)
Quarter: 2023Q4

REPORT INFORMATION
  Report Type: Spontaneous
  Country: US (occurrence: US)
  Receive Date: 20231125
  Receipt Date: 20231215
  Transmission Date: 20240109
  Serious: No
  Sender: FDA-Public Use
  Company Number: US-JNJFOC-20231165876

PATIENT
  Age: 50 Year
  Sex: Female

DRUGS (8)
  1. TYLENOL [Suspect]
     Active Substance: ACETAMINOPHEN
     Indication: Migraine
     Route: 065
  2. IBUPROFEN [Suspect]
     Active Substance: IBUPROFEN
     Indication: Migraine
     Route: 065
  3. UPTRAVI [Concomitant]
     Active Substance: SELEXIPAG
     Indication: Pulmonary arterial hypertension
     Dosage: 800 MCG, BID, ORAL USE
     Route: 048
  4. UPTRAVI [Concomitant]
     Active Substance: SELEXIPAG
     Dosage: 200 MCG, BID, ORAL USE
     Route: 048
     Dates: start: 20231010
  5. TREPROSTINIL SODIUM [Concomitant]
     Active Substance: TREPROSTINIL SODIUM
     Indication: Pulmonary arterial hypertension
     Route: 065
     Dates: start: 202309
  6. REMODULIN [Concomitant]
     Active Substance: TREPROSTINIL
     Indication: Pulmonary arterial hypertension
     Route: 065
     Dates: start: 202310
  7. LIDOCAINE\PRILOCAINE [Concomitant]
     Active Substance: LIDOCAINE\PRILOCAINE
     Indication: Pain
     Route: 065
  8. TRIAMCINOLONE [Concomitant]
     Active Substance: TRIAMCINOLONE
     Indication: Pain
     Route: 065

REACTIONS (1)
  - Drug ineffective [Unknown]
